FAERS Safety Report 7017942-3 (Version None)
Quarter: 2010Q3

REPORT INFORMATION
  Report Type: 
  Country: None (occurrence: None)
  Receive Date: 20100928
  Receipt Date: 20100917
  Transmission Date: 20110219
  Serious: Yes (Hospitalization)
  Sender: FDA-Public Use
  Company Number: US-ASTRAZENECA-2010SE43822

PATIENT
  Age: 824 Month
  Sex: Female
  Weight: 49 kg

DRUGS (6)
  1. SYMBICORT [Suspect]
     Indication: EMPHYSEMA
     Dosage: 160/4.5 MCG, TWO PUFFS
     Route: 055
     Dates: start: 20100101
  2. LANOXIN [Concomitant]
  3. SPIRIVA [Concomitant]
  4. XOPENEX [Concomitant]
  5. COUMADIN [Concomitant]
  6. ADVAIR DISKUS 100/50 [Concomitant]

REACTIONS (1)
  - PNEUMONIA [None]
